FAERS Safety Report 19099112 (Version 2)
Quarter: 2021Q2

REPORT INFORMATION
  Report Type: Spontaneous
  Country: US (occurrence: US)
  Receive Date: 20210406
  Receipt Date: 20210623
  Transmission Date: 20210717
  Serious: No
  Sender: FDA-Public Use
  Company Number: US-GE HEALTHCARE LIFE SCIENCES-2021CSU000467

PATIENT
  Age: 67 Year
  Sex: Female

DRUGS (9)
  1. DATSCAN [Suspect]
     Active Substance: IODINE\IOFLUPANE I-123
     Indication: GAIT DISTURBANCE
  2. ERGOCALCIFEROL. [Concomitant]
     Active Substance: ERGOCALCIFEROL
     Dosage: 1.25 MG
     Route: 048
  3. VITAMINS NOS [Concomitant]
     Active Substance: VITAMINS
  4. DATSCAN [Suspect]
     Active Substance: IODINE\IOFLUPANE I-123
     Indication: MAGNETIC RESONANCE IMAGING HEAD
     Dosage: 207.57 MBQ (5.61 MCI), SINGLE
     Route: 042
     Dates: start: 20210126, end: 20210126
  5. DATSCAN [Suspect]
     Active Substance: IODINE\IOFLUPANE I-123
     Indication: MEMORY IMPAIRMENT
  6. PREVAGEN [APOAEQUORIN] [Concomitant]
     Indication: MEMORY IMPAIRMENT
     Dosage: 10 MG
     Route: 048
  7. DONEPEZIL HCL [Concomitant]
     Active Substance: DONEPEZIL HYDROCHLORIDE
     Dosage: 5 MG
     Route: 048
  8. FERROUS SULFATE. [Concomitant]
     Active Substance: FERROUS SULFATE
     Dosage: 325 MG
     Route: 048
  9. DATSCAN [Suspect]
     Active Substance: IODINE\IOFLUPANE I-123
     Indication: BRADYKINESIA

REACTIONS (2)
  - No adverse event [Recovered/Resolved]
  - Drug ineffective [Recovered/Resolved]

NARRATIVE: CASE EVENT DATE: 20210126
